FAERS Safety Report 20028793 (Version 2)
Quarter: 2022Q1

REPORT INFORMATION
  Report Type: Spontaneous
  Country: US (occurrence: US)
  Receive Date: 20211103
  Receipt Date: 20220201
  Transmission Date: 20220423
  Serious: No
  Sender: FDA-Public Use
  Company Number: US-MYLANLABS-2021M1078864

PATIENT
  Age: 51 Year
  Sex: Male
  Weight: 150 kg

DRUGS (1)
  1. EPINEPHRINE [Suspect]
     Active Substance: EPINEPHRINE
     Indication: Hypersensitivity
     Dosage: AS NEEDED
     Route: 058
     Dates: start: 202110

REACTIONS (3)
  - Dizziness [Unknown]
  - Injection site pain [Unknown]
  - Product label on wrong product [Recovered/Resolved]

NARRATIVE: CASE EVENT DATE: 20211001
